FAERS Safety Report 4294323-7 (Version None)
Quarter: 2004Q1

REPORT INFORMATION
  Report Type: 
  Country: None (occurrence: None)
  Receive Date: 20040211
  Receipt Date: 20030805
  Transmission Date: 20041129
  Serious: No
  Sender: FDA-Public Use
  Company Number: US-GLAXOSMITHKLINE-A0420631A

PATIENT
  Age: 54 Year
  Sex: Male

DRUGS (5)
  1. LAMICTAL [Suspect]
     Indication: BIPOLAR DISORDER
     Dosage: 50MG PER DAY
     Route: 048
  2. ESKALITH CR [Concomitant]
  3. THEOLAIR [Concomitant]
  4. NARDIL [Concomitant]
  5. SEROQUEL [Concomitant]

REACTIONS (1)
  - HEADACHE [None]
